FAERS Safety Report 23234051 (Version 1)
Quarter: 2023Q4

REPORT INFORMATION
  Report Type: Spontaneous
  Country: DE (occurrence: DE)
  Receive Date: 20231128
  Receipt Date: 20231128
  Transmission Date: 20240109
  Serious: Yes (Other)
  Sender: FDA-Public Use
  Company Number: DE-ALCON LABORATORIES-ALC2023DE005325

PATIENT

DRUGS (2)
  1. LATANOPROST\NETARSUDIL MESYLATE [Suspect]
     Active Substance: LATANOPROST\NETARSUDIL MESYLATE
     Indication: Glaucoma
     Dosage: UNK
     Route: 065
     Dates: start: 20230710, end: 20230919
  2. DORZOVISION [Concomitant]
     Indication: Product used for unknown indication
     Dosage: UNK, BID (TWICE A DAY)
     Route: 065
     Dates: start: 20210419

REACTIONS (3)
  - Erythema [Recovered/Resolved]
  - Cornea verticillata [Recovered/Resolved]
  - Conjunctival hyperaemia [Recovered/Resolved]

NARRATIVE: CASE EVENT DATE: 20230919
